FAERS Safety Report 5989508-5 (Version None)
Quarter: 2008Q4

REPORT INFORMATION
  Report Type: 
  Country: None (occurrence: None)
  Receive Date: 20081208
  Receipt Date: 20081125
  Transmission Date: 20090506
  Serious: Yes (Other)
  Sender: FDA-Public Use
  Company Number: IMP_03973_2008

PATIENT
  Age: 38 Year
  Sex: Male
  Weight: 149.687 kg

DRUGS (8)
  1. BUPROPION HYDROCHLORIDE [Suspect]
     Indication: MAJOR DEPRESSION
     Dosage: (150 MG QD ORAL)
     Route: 048
  2. GLIMEPIRIDE [Concomitant]
  3. ATORVASTATIN [Concomitant]
  4. ASPIRIN [Concomitant]
  5. LISINOPRIL [Concomitant]
  6. OMEPRAZOLE [Concomitant]
  7. IBUPROFEN [Concomitant]
  8. COLCHICINE [Concomitant]

REACTIONS (11)
  - CONDITION AGGRAVATED [None]
  - CONSTIPATION [None]
  - DIARRHOEA [None]
  - DRUG EFFECT DECREASED [None]
  - DRUG INEFFECTIVE [None]
  - GOUT [None]
  - HAEMORRHOIDS [None]
  - PAIN [None]
  - PROCTALGIA [None]
  - RECTAL FISSURE [None]
  - RECTAL HAEMORRHAGE [None]
